FAERS Safety Report 15331924 (Version 2)
Quarter: 2018Q3

REPORT INFORMATION
  Report Type: Spontaneous
  Country: GB (occurrence: GB)
  Receive Date: 20180829
  Receipt Date: 20180912
  Transmission Date: 20181010
  Serious: Yes (Death, Other)
  Sender: FDA-Public Use
  Company Number: GB-ELI_LILLY_AND_COMPANY-GB201808011837

PATIENT
  Age: 44 Year
  Sex: Female

DRUGS (14)
  1. PREGABALIN. [Suspect]
     Active Substance: PREGABALIN
     Indication: ANXIETY
     Dosage: UNK
     Route: 065
  2. OXYCODONE HYDROCHLORIDE. [Suspect]
     Active Substance: OXYCODONE HYDROCHLORIDE
     Indication: BACK PAIN
     Dosage: UNK UNK, UNKNOWN
     Route: 065
  3. DIAZEPAM. [Suspect]
     Active Substance: DIAZEPAM
     Indication: SLEEP DISORDER
     Dosage: UNK UNK, UNKNOWN
     Route: 065
  4. FLUOXETINE HYDROCHLORIDE. [Suspect]
     Active Substance: FLUOXETINE HYDROCHLORIDE
     Indication: DEPRESSION
     Dosage: UNK UNK, UNKNOWN
     Route: 065
  5. DIAZEPAM. [Suspect]
     Active Substance: DIAZEPAM
     Indication: BACK PAIN
     Dosage: UNK
     Route: 065
  6. CODEINE PHOSPHATE [Suspect]
     Active Substance: CODEINE PHOSPHATE
     Indication: PRODUCT USED FOR UNKNOWN INDICATION
     Dosage: UNK UNK, UNKNOWN
     Route: 065
  7. COCODAMOL [Suspect]
     Active Substance: ACETAMINOPHEN\CODEINE PHOSPHATE
     Indication: INTERVERTEBRAL DISC PROTRUSION
  8. NYTOL [Suspect]
     Active Substance: DIPHENHYDRAMINE HYDROCHLORIDE
     Indication: SLEEP DISORDER
     Dosage: UNK UNK, UNKNOWN
     Route: 065
  9. DIAZEPAM. [Suspect]
     Active Substance: DIAZEPAM
     Indication: ANALGESIC THERAPY
  10. HYDROXYZINE                        /00058402/ [Suspect]
     Active Substance: HYDROXYZINE HYDROCHLORIDE
     Indication: PRODUCT USED FOR UNKNOWN INDICATION
     Dosage: UNK UNK, UNKNOWN
     Route: 065
  11. AMITRIPTYLINE [Suspect]
     Active Substance: AMITRIPTYLINE
     Indication: PRODUCT USED FOR UNKNOWN INDICATION
     Dosage: UNK UNK, UNKNOWN
     Route: 065
  12. COCODAMOL [Suspect]
     Active Substance: ACETAMINOPHEN\CODEINE PHOSPHATE
     Indication: BACK PAIN
     Dosage: UNK UNK, UNKNOWN
     Route: 065
  13. PREGABALIN. [Suspect]
     Active Substance: PREGABALIN
     Indication: BACK PAIN
     Dosage: UNK UNK, UNKNOWN
     Route: 065
  14. CHLORDIAZEPOXIDE. [Suspect]
     Active Substance: CHLORDIAZEPOXIDE
     Indication: PRODUCT USED FOR UNKNOWN INDICATION
     Dosage: UNK UNK, UNKNOWN
     Route: 065

REACTIONS (3)
  - Back pain [Fatal]
  - Accidental overdose [Fatal]
  - Toxicity to various agents [Fatal]

NARRATIVE: CASE EVENT DATE: 20171129
